FAERS Safety Report 5823157-4 (Version None)
Quarter: 2008Q3

REPORT INFORMATION
  Report Type: 
  Country: None (occurrence: None)
  Receive Date: 20080725
  Receipt Date: 20080717
  Transmission Date: 20090109
  Serious: Yes (Other)
  Sender: FDA-Public Use
  Company Number: PHBS2008US03691

PATIENT
  Age: 62 Year
  Sex: Female

DRUGS (8)
  1. IMATINIB MESYLATE [Suspect]
     Indication: ACUTE LYMPHOCYTIC LEUKAEMIA
     Dosage: 600 MG/D
     Route: 048
     Dates: start: 20060501
  2. IMATINIB MESYLATE [Suspect]
     Dosage: 800 MG/D
     Route: 048
     Dates: start: 20070901
  3. IMATINIB MESYLATE [Suspect]
     Dosage: 600 MG/D
     Route: 048
     Dates: start: 20070301
  4. CYCLOPHOSPHAMIDE [Suspect]
     Dosage: UNK, UNK
     Route: 065
     Dates: start: 20060501, end: 20070901
  5. VINCRISTINE [Suspect]
     Dosage: UNK, UNK
     Route: 065
     Dates: start: 20060501
  6. DOXORUBICIN [Suspect]
     Dosage: UNK, UNK
     Route: 065
     Dates: start: 20060501, end: 20070901
  7. DEXAMETHASONE [Suspect]
     Dosage: UNK, UNK
     Route: 065
     Dates: start: 20060501, end: 20070901
  8. PREDNISONE [Concomitant]
     Route: 065
     Dates: start: 20070901

REACTIONS (7)
  - CHROMOSOME ANALYSIS ABNORMAL [None]
  - CYTOGENETIC ABNORMALITY [None]
  - FLUID RETENTION [None]
  - MALIGNANT NEOPLASM PROGRESSION [None]
  - MONOCYTOSIS [None]
  - MYELODYSPLASTIC SYNDROME [None]
  - PANCYTOPENIA [None]
